FAERS Safety Report 9275033 (Version 1)
Quarter: 2013Q2

REPORT INFORMATION
  Report Type: Spontaneous
  Country: US (occurrence: None)
  Receive Date: 20130501
  Receipt Date: 20130501
  Transmission Date: 20140414
  Serious: Yes (Other)
  Sender: FDA-Public Use
  Company Number: None

PATIENT
  Age: 45 Year
  Sex: Female
  Weight: 88.45 kg

DRUGS (1)
  1. FLAGYL [Suspect]
     Indication: GIARDIASIS
     Dosage: 250 MG  3 X PER DAY PO
     Route: 048
     Dates: start: 20130421, end: 20130426

REACTIONS (8)
  - Dyspnoea [None]
  - Burning sensation [None]
  - Rash papular [None]
  - Somnolence [None]
  - Headache [None]
  - Dizziness [None]
  - Pain in extremity [None]
  - Breast pain [None]
